FAERS Safety Report 26050446 (Version 1)
Quarter: 2025Q4

REPORT INFORMATION
  Report Type: Spontaneous
  Country: AU (occurrence: AU)
  Receive Date: 20251116
  Receipt Date: 20251116
  Transmission Date: 20260117
  Serious: Yes (Hospitalization)
  Sender: CIPLA
  Company Number: AU-CIPLA (EU) LIMITED-2025AU14502

PATIENT

DRUGS (8)
  1. LEVETIRACETAM [Suspect]
     Active Substance: LEVETIRACETAM
     Indication: Adverse event
     Dosage: 750 MILLIGRAM; INTERVAL: 2 DAY
     Route: 048
     Dates: start: 20250317
  2. LACOSAMIDE [Suspect]
     Active Substance: LACOSAMIDE
     Indication: Adverse event
     Dosage: 100 MILLIGRAM, QD
     Route: 048
     Dates: start: 202411
  3. PAXALISIB [Suspect]
     Active Substance: PAXALISIB
     Indication: Astrocytoma
     Dosage: 45 MILLIGRAM, QD
     Route: 048
     Dates: start: 20250122, end: 20250404
  4. PANTOPRAZOLE SODIUM [Concomitant]
     Active Substance: PANTOPRAZOLE SODIUM
     Indication: Product used for unknown indication
     Dosage: UNK
     Route: 065
  5. METFORMIN HYDROCHLORIDE [Concomitant]
     Active Substance: METFORMIN HYDROCHLORIDE
     Indication: Product used for unknown indication
     Dosage: UNK
     Route: 065
  6. DEXAMETHASONE SODIUM SUCCINATE [Concomitant]
     Active Substance: DEXAMETHASONE SODIUM SUCCINATE
     Indication: Product used for unknown indication
     Dosage: UNK
     Route: 065
  7. CYCLIZINE HYDROCHLORIDE [Concomitant]
     Active Substance: CYCLIZINE HYDROCHLORIDE
     Indication: Product used for unknown indication
     Dosage: UNK
     Route: 065
  8. CLONAZEPAM [Concomitant]
     Active Substance: CLONAZEPAM
     Indication: Product used for unknown indication
     Dosage: UNK
     Route: 065

REACTIONS (1)
  - Drug eruption [Recovering/Resolving]

NARRATIVE: CASE EVENT DATE: 20250408
